FAERS Safety Report 19609184 (Version 2)
Quarter: 2021Q3

REPORT INFORMATION
  Report Type: Spontaneous
  Country: FR (occurrence: FR)
  Receive Date: 20210726
  Receipt Date: 20210827
  Transmission Date: 20211014
  Serious: Yes (Death)
  Sender: FDA-Public Use
  Company Number: FR-ROCHE-2876825

PATIENT
  Age: 68 Year
  Sex: Male

DRUGS (13)
  1. CELLCEPT [Suspect]
     Active Substance: MYCOPHENOLATE MOFETIL\MYCOPHENOLATE MOFETIL HYDROCHLORIDE
     Indication: PROPHYLAXIS AGAINST TRANSPLANT REJECTION
     Dosage: MOST RECENT DOSE OF MYCOPHENOLATE MOFETIL WAS RECEIVED ON 02/JUL/2021.
     Route: 048
     Dates: start: 20210522
  2. CLOFARABINE. [Suspect]
     Active Substance: CLOFARABINE
     Indication: BONE MARROW CONDITIONING REGIMEN
     Dosage: MOST RECENT DOSE OF CLOFARABINE WAS RECEIVED ON 30/JUN/2021.
     Route: 042
     Dates: start: 20210628
  3. ETOPOSIDE MYLAN [Suspect]
     Active Substance: ETOPOSIDE
     Indication: BONE MARROW CONDITIONING REGIMEN
     Dosage: MOST RECENT DOSE OF ETOPOSIDE WAS RECEIVED ON 30/JUN/2021.
     Route: 042
     Dates: start: 20210628
  4. UROMITEXAN [Concomitant]
     Active Substance: MESNA
     Indication: DRUG TOXICITY PROPHYLAXIS
     Route: 042
     Dates: start: 20210628, end: 20210630
  5. SANDIMMUN [Suspect]
     Active Substance: CYCLOSPORINE
     Indication: PROPHYLAXIS AGAINST TRANSPLANT REJECTION
     Dosage: MOST RECENT DOSE OF CICLOSPORIN WAS RECEIVED ON 02/JUL/2021.
     Route: 042
     Dates: start: 20210522
  6. GABAPENTINE [Concomitant]
     Active Substance: GABAPENTIN
     Indication: PAIN
     Dosage: 100 MGX3/JOUR
     Route: 048
     Dates: start: 20210612, end: 20210701
  7. URSODEOXYCHOLIC ACID [Concomitant]
     Active Substance: URSODIOL
     Indication: CHOLANGITIS
     Route: 048
     Dates: start: 20210612, end: 20210701
  8. ZYVOXID [Suspect]
     Active Substance: LINEZOLID
     Indication: INFECTION PROPHYLAXIS
     Dosage: MOST RECENT DOSE OF LINEZOLID WAS RECEIVED ON 29/JUN/2021.
     Route: 065
     Dates: start: 20210609
  9. IMIPENEM/CILASTATINE [Suspect]
     Active Substance: CILASTATIN SODIUM\IMIPENEM
     Indication: INFECTION PROPHYLAXIS
     Dosage: MOST RECENT DOSE OF CILASTATIN SODIUM;IMIPENEM WAS RECEIVED ON 03/JUL/2021.
     Route: 042
     Dates: start: 20210609
  10. TRAMADOL HYDROCHLORIDE. [Concomitant]
     Active Substance: TRAMADOL HYDROCHLORIDE
     Indication: PAIN
     Route: 048
     Dates: start: 20210612, end: 20210701
  11. ZOPHREN [Concomitant]
     Active Substance: ONDANSETRON
     Indication: PROPHYLAXIS OF NAUSEA AND VOMITING
     Route: 048
     Dates: start: 20210628, end: 20210630
  12. ENDOXAN [Suspect]
     Active Substance: CYCLOPHOSPHAMIDE
     Indication: BONE MARROW CONDITIONING REGIMEN
     Dosage: MOST RECENT DOSE OF CYCLOPHOSPHAMIDE WAS RECEIVED ON 30/JUN/2021.
     Route: 042
     Dates: start: 20210628
  13. CANCIDAS [Suspect]
     Active Substance: CASPOFUNGIN ACETATE
     Indication: ASPERGILLUS INFECTION
     Dosage: MOST RECENT DOSE OF CASPOFUNGIN ACETATE WAS RECEIVED ON 03/JUL/2021.
     Route: 042
     Dates: start: 20210611

REACTIONS (1)
  - Acute kidney injury [Fatal]

NARRATIVE: CASE EVENT DATE: 20210702
